FAERS Safety Report 12479141 (Version 1)
Quarter: 2016Q2

REPORT INFORMATION
  Report Type: Spontaneous
  Country: US (occurrence: US)
  Receive Date: 20160620
  Receipt Date: 20160620
  Transmission Date: 20160815
  Serious: No
  Sender: FDA-Public Use
  Company Number: US-TEVA-669494ACC

PATIENT
  Sex: Female
  Weight: 73.09 kg

DRUGS (1)
  1. PARAGARD T 380A [Suspect]
     Active Substance: COPPER
     Indication: CONTRACEPTION
     Dates: start: 20160113, end: 20160520

REACTIONS (3)
  - Vaginal haemorrhage [Unknown]
  - Device expulsion [Recovered/Resolved]
  - Muscle spasms [Unknown]
